FAERS Safety Report 19571505 (Version 2)
Quarter: 2021Q3

REPORT INFORMATION
  Report Type: Other
  Country: JP (occurrence: JP)
  Receive Date: 20210715
  Receipt Date: 20210810
  Transmission Date: 20211014
  Serious: No
  Sender: FDA-Public Use
  Company Number: JP-SUNOVION-2021DSP010172

PATIENT
  Age: 5 Decade
  Sex: Male

DRUGS (9)
  1. VALERIN (VALPROATE SODIUM) [Suspect]
     Active Substance: VALPROATE SODIUM
     Indication: ANXIETY
     Dosage: 200 MG, QD
     Route: 048
  2. RISPERIDONE. [Concomitant]
     Active Substance: RISPERIDONE
     Dosage: UNK
     Route: 065
  3. LITHIUM CARBONATE. [Concomitant]
     Active Substance: LITHIUM CARBONATE
     Dosage: UNK
     Route: 065
  4. LULLAN [Suspect]
     Active Substance: PEROSPIRONE HYDROCHLORIDE
     Indication: ANXIETY
     Dosage: 4 MG, QD
     Route: 048
  5. LATUDA [Suspect]
     Active Substance: LURASIDONE HYDROCHLORIDE
     Indication: SCHIZOAFFECTIVE DISORDER
     Dosage: UNK
     Route: 048
  6. LULLAN [Suspect]
     Active Substance: PEROSPIRONE HYDROCHLORIDE
     Indication: IRRITABILITY
  7. LAMOTRIGINE. [Suspect]
     Active Substance: LAMOTRIGINE
     Indication: PRODUCT USED FOR UNKNOWN INDICATION
     Dosage: UNK
     Route: 048
  8. VALERIN (VALPROATE SODIUM) [Suspect]
     Active Substance: VALPROATE SODIUM
     Indication: IRRITABILITY
  9. BIPRESSO [Concomitant]
     Dosage: UNK
     Route: 048

REACTIONS (1)
  - Off label use [Unknown]
